FAERS Safety Report 9815854 (Version 1)
Quarter: 2014Q1

REPORT INFORMATION
  Report Type: Report from Study
  Country: CN (occurrence: CN)
  Receive Date: 20140114
  Receipt Date: 20140114
  Transmission Date: 20141002
  Serious: Yes (Death)
  Sender: FDA-Public Use
  Company Number: CN-AMGEN-CHNCT2014002412

PATIENT
  Age: 49 Year
  Sex: Female

DRUGS (8)
  1. DARBEPOETIN ALFA [Suspect]
     Indication: NEPHROGENIC ANAEMIA
     Dosage: 30 MUG, QWK
     Route: 042
     Dates: start: 20140106, end: 20140108
  2. EPOETIN ALFA [Suspect]
     Indication: NEPHROGENIC ANAEMIA
     Dosage: 7500 IU, QWK
     Route: 042
     Dates: start: 20131111, end: 20140105
  3. IRON SUCROSE [Concomitant]
     Dosage: 0.1 G/WEEK
     Route: 065
     Dates: start: 20120502, end: 20140108
  4. NIMOTOP [Concomitant]
     Dosage: 90 MG, UNK
     Route: 065
     Dates: start: 20130703, end: 20131003
  5. BETAHISTINE MESILATE [Concomitant]
     Dosage: 6 MG, UNK
     Route: 065
     Dates: start: 20130703, end: 20131003
  6. SIMVASTATIN [Concomitant]
     Dosage: 20 MG, QD(QN)
     Route: 065
     Dates: start: 20130904, end: 20140108
  7. SODIUM BICARBONATE [Concomitant]
     Dosage: 1.0 G, TID
     Route: 065
     Dates: start: 20130904, end: 20130904
  8. COMPOUND VITAMIN B                 /02184201/ [Concomitant]
     Dosage: 1 DF, QD
     Dates: start: 20130904, end: 20130904

REACTIONS (1)
  - Cerebral haemorrhage [Fatal]
